FAERS Safety Report 22953138 (Version 3)
Quarter: 2023Q4

REPORT INFORMATION
  Report Type: Other
  Country: FR (occurrence: None)
  Receive Date: 20230918
  Receipt Date: 20231227
  Transmission Date: 20240110
  Serious: Yes (Hospitalization, Other)
  Sender: FDA-Public Use
  Company Number: FR-ROCHE-3421183

PATIENT

DRUGS (2)
  1. OBINUTUZUMAB [Suspect]
     Active Substance: OBINUTUZUMAB
     Indication: Nephrotic syndrome
     Dosage: 300 MG/1.73M2 AND DILUTE IN 500ML OF NORMAL SALINE
     Route: 042
  2. OBINUTUZUMAB [Suspect]
     Active Substance: OBINUTUZUMAB
     Indication: Nephrotic syndrome
     Dosage: 1000 MG IN 40ML OF STERILE WATER FOR INJECTION (CONCENTRATION 25MG/ML)
     Route: 042

REACTIONS (6)
  - Neutropenia [Recovered/Resolved]
  - Pneumonia [Unknown]
  - Malignant hypertension [Unknown]
  - Infusion related reaction [Unknown]
  - Appendicitis [Unknown]
  - Off label use [Unknown]
